FAERS Safety Report 6090287-4 (Version None)
Quarter: 2009Q1

REPORT INFORMATION
  Report Type: 
  Country: None (occurrence: None)
  Receive Date: 20090224
  Receipt Date: 20081215
  Transmission Date: 20090719
  Serious: No
  Sender: FDA-Public Use
  Company Number: US-ABBOTT-08P-163-0493957-00

PATIENT
  Sex: Female

DRUGS (13)
  1. SIMCOR [Suspect]
     Indication: BLOOD CHOLESTEROL INCREASED
     Dosage: 500/20MG
     Route: 048
     Dates: start: 20081203
  2. SIMCOR [Suspect]
     Indication: BLOOD TRIGLYCERIDES INCREASED
  3. CYMBALTA [Concomitant]
     Indication: DRUG USE FOR UNKNOWN INDICATION
     Route: 048
  4. FLEXERIL [Concomitant]
     Indication: DRUG USE FOR UNKNOWN INDICATION
     Route: 048
  5. DICLOFENAC [Concomitant]
     Indication: DRUG USE FOR UNKNOWN INDICATION
     Route: 048
  6. THYROID TAB [Concomitant]
     Indication: DRUG USE FOR UNKNOWN INDICATION
     Route: 048
  7. UNKNOWN OTHER FEMALE HORMONE [Concomitant]
     Indication: DRUG USE FOR UNKNOWN INDICATION
     Route: 048
  8. CHROMIUM [Concomitant]
     Indication: DRUG USE FOR UNKNOWN INDICATION
     Route: 048
  9. MELATONIN [Concomitant]
     Indication: DRUG USE FOR UNKNOWN INDICATION
     Route: 048
  10. KAVA ROOT [Concomitant]
     Indication: DRUG USE FOR UNKNOWN INDICATION
     Route: 048
  11. BENADRYL [Concomitant]
     Indication: DRUG USE FOR UNKNOWN INDICATION
     Route: 048
  12. ASPIRIN [Concomitant]
     Indication: DRUG USE FOR UNKNOWN INDICATION
     Route: 048
  13. PROGESTERONE [Concomitant]
     Indication: DRUG USE FOR UNKNOWN INDICATION
     Route: 061

REACTIONS (4)
  - ERYTHEMA [None]
  - FEELING HOT [None]
  - FLUSHING [None]
  - PARAESTHESIA [None]
